FAERS Safety Report 12627907 (Version 1)
Quarter: 2016Q3

REPORT INFORMATION
  Report Type: Spontaneous
  Country: GB (occurrence: GB)
  Receive Date: 20160807
  Receipt Date: 20160807
  Transmission Date: 20161109
  Serious: Yes (Hospitalization)
  Sender: FDA-Public Use
  Company Number: GB-TEVA-681067ACC

PATIENT
  Age: 78 Year
  Sex: Male
  Weight: 107 kg

DRUGS (13)
  1. ALENDRONIC ACID [Concomitant]
     Active Substance: ALENDRONIC ACID
  2. BISOPROLOL [Concomitant]
     Active Substance: BISOPROLOL
  3. FUROSEMIDE. [Concomitant]
     Active Substance: FUROSEMIDE
  4. OMEPRAZOLE. [Concomitant]
     Active Substance: OMEPRAZOLE
  5. AMIODARONE [Suspect]
     Active Substance: AMIODARONE
     Indication: VENTRICULAR TACHYCARDIA
     Dosage: 200MG THREE TIMES DAILY LOADING DOSE. STARTED AND LEVEL INCREASED TO 26 THEN FURTHER TO 39.
     Route: 048
     Dates: start: 20160711
  6. TIOTROPIUM [Concomitant]
     Active Substance: TIOTROPIUM
  7. THEOPHYLLINE [Interacting]
     Active Substance: THEOPHYLLINE ANHYDROUS
     Indication: CHRONIC OBSTRUCTIVE PULMONARY DISEASE
     Dosage: 400MG IN MORNING, 300MG AT NIGHT
     Route: 048
  8. ASPIRIN. [Concomitant]
     Active Substance: ASPIRIN
  9. CITALOPRAM [Concomitant]
     Active Substance: CITALOPRAM HYDROBROMIDE
     Dates: end: 20160712
  10. ISOSORBIDE MONONITRATE. [Concomitant]
     Active Substance: ISOSORBIDE MONONITRATE
  11. SERTRALINE [Concomitant]
     Active Substance: SERTRALINE HYDROCHLORIDE
     Dates: start: 20160712
  12. LISINOPRIL. [Concomitant]
     Active Substance: LISINOPRIL
  13. DUTASTERIDE. [Concomitant]
     Active Substance: DUTASTERIDE

REACTIONS (4)
  - Potentiating drug interaction [Not Recovered/Not Resolved]
  - Anxiety [Unknown]
  - Drug level increased [Unknown]
  - Aggression [Unknown]
